FAERS Safety Report 10170937 (Version 2)
Quarter: 2014Q2

REPORT INFORMATION
  Report Type: Spontaneous
  Country: AU (occurrence: AU)
  Receive Date: 20140514
  Receipt Date: 20140605
  Transmission Date: 20141212
  Serious: Yes (Hospitalization, Other)
  Sender: FDA-Public Use
  Company Number: AU-AMGEN INC.-AUSSP2014034710

PATIENT
  Age: 73 Year
  Sex: Female

DRUGS (3)
  1. NEULASTA [Suspect]
     Indication: PRODUCT USED FOR UNKNOWN INDICATION
     Dosage: 6 MG, 24 HRS POST COMPLETION OF CHEMO
     Route: 065
     Dates: start: 20140425
  2. DOCETAXEL [Suspect]
     Indication: BREAST CANCER
     Dosage: 135 MG, UNK
     Route: 065
     Dates: start: 20140404
  3. CYCLOPHOSPHAMIDE [Suspect]
     Indication: BREAST CANCER
     Dosage: 1070 MG, UNK
     Route: 065
     Dates: start: 20140404

REACTIONS (3)
  - Febrile neutropenia [Unknown]
  - Full blood count decreased [Recovered/Resolved]
  - Neutropenic sepsis [Unknown]
